FAERS Safety Report 25597662 (Version 1)
Quarter: 2025Q3

REPORT INFORMATION
  Report Type: Spontaneous
  Country: US (occurrence: US)
  Receive Date: 20250723
  Receipt Date: 20250723
  Transmission Date: 20251021
  Serious: Yes (Other)
  Sender: ELI LILLY AND COMPANY
  Company Number: US-ELI_LILLY_AND_COMPANY-US202507014612

PATIENT
  Sex: Female

DRUGS (3)
  1. TALTZ [Suspect]
     Active Substance: IXEKIZUMAB
     Indication: Product used for unknown indication
  2. TALTZ [Suspect]
     Active Substance: IXEKIZUMAB
     Dates: start: 20250701
  3. EBGLYSS [Suspect]
     Active Substance: LEBRIKIZUMAB-LBKZ
     Indication: Product used for unknown indication
     Route: 065

REACTIONS (9)
  - Muscle tightness [Unknown]
  - Swelling of eyelid [Unknown]
  - Swelling of nose [Unknown]
  - Lip swelling [Unknown]
  - Erythema [Unknown]
  - Nasal congestion [Unknown]
  - Weight decreased [Unknown]
  - Feeding disorder [Unknown]
  - Joint swelling [Unknown]
